FAERS Safety Report 23166566 (Version 1)
Quarter: 2023Q4

REPORT INFORMATION
  Report Type: Spontaneous
  Country: None (occurrence: US)
  Receive Date: 20231109
  Receipt Date: 20231109
  Transmission Date: 20240109
  Serious: Yes (Other)
  Sender: FDA-Public Use
  Company Number: US-Pine Pharmaceuticals, LLC-2148058

PATIENT

DRUGS (1)
  1. BEVACIZUMAB [Suspect]
     Active Substance: BEVACIZUMAB
     Indication: Off label use
     Route: 031

REACTIONS (1)
  - Endophthalmitis [Recovered/Resolved]

NARRATIVE: CASE EVENT DATE: 20230512
